FAERS Safety Report 19818043 (Version 2)
Quarter: 2021Q4

REPORT INFORMATION
  Report Type: Spontaneous
  Country: US (occurrence: US)
  Receive Date: 20210911
  Receipt Date: 20211023
  Transmission Date: 20220303
  Serious: Yes (Other)
  Sender: FDA-Public Use
  Company Number: US-AMGEN-USASP2021139527

PATIENT
  Age: 9 Year
  Sex: Female

DRUGS (2)
  1. ENBREL [Suspect]
     Active Substance: ETANERCEPT
     Indication: Osteomyelitis
     Dosage: 25 MILLIGRAM, QWK
     Route: 065
     Dates: start: 2021
  2. ENBREL [Suspect]
     Active Substance: ETANERCEPT
     Indication: Chronic recurrent multifocal osteomyelitis

REACTIONS (4)
  - Anaphylactic reaction [Unknown]
  - Accidental exposure to product [Unknown]
  - Off label use [Unknown]
  - Device difficult to use [Unknown]

NARRATIVE: CASE EVENT DATE: 20210101
